FAERS Safety Report 6150127-1 (Version None)
Quarter: 2009Q2

REPORT INFORMATION
  Report Type: 
  Country: None (occurrence: None)
  Receive Date: 20090409
  Receipt Date: 20090403
  Transmission Date: 20091009
  Serious: Yes (Hospitalization, Other)
  Sender: FDA-Public Use
  Company Number: US-ASTRAZENECA-2009UW08438

PATIENT
  Age: 81 Year
  Sex: Male

DRUGS (6)
  1. ATACAND [Suspect]
     Route: 048
     Dates: start: 20070906
  2. ASPIRIN [Concomitant]
  3. CARDIZEM [Concomitant]
  4. LEXAPRO [Concomitant]
  5. PLAVIX [Concomitant]
  6. VYTORIN [Concomitant]

REACTIONS (2)
  - CHEST PAIN [None]
  - HYPOTENSION [None]
